FAERS Safety Report 8345962-5 (Version None)
Quarter: 2012Q2

REPORT INFORMATION
  Report Type: 
  Country: None (occurrence: None)
  Receive Date: 20120507
  Receipt Date: 20120425
  Transmission Date: 20120825
  Serious: Yes (Hospitalization)
  Sender: FDA-Public Use
  Company Number: 2012SP022945

PATIENT
  Age: 72 Year
  Sex: Male

DRUGS (9)
  1. OLANZAPINE [Suspect]
     Dosage: 10 MG; BID; PO
     Route: 048
     Dates: start: 20120102, end: 20120411
  2. ASPIRIN [Concomitant]
  3. CYANOCOBALAMIN [Concomitant]
  4. LACTULOSE [Concomitant]
  5. TRAZODONE HCL [Suspect]
     Dosage: 200 MG; QD; PO
     Route: 048
     Dates: end: 20120411
  6. SALMETEROL/FLUTICASONPROPIONAAT [Concomitant]
  7. ALBUTEROL [Concomitant]
  8. MIRTAZAPINE [Suspect]
     Dosage: 30 MG; QD; PO
     Route: 048
     Dates: end: 20120411
  9. MOMETASONE FUROATE [Concomitant]

REACTIONS (2)
  - UNRESPONSIVE TO STIMULI [None]
  - NEUROLEPTIC MALIGNANT SYNDROME [None]
